FAERS Safety Report 5713769-0 (Version None)
Quarter: 2008Q2

REPORT INFORMATION
  Report Type: 
  Country: None (occurrence: None)
  Receive Date: 20080422
  Receipt Date: 20080417
  Transmission Date: 20081010
  Serious: Yes (Hospitalization)
  Sender: FDA-Public Use
  Company Number: DE-BRISTOL-MYERS SQUIBB COMPANY-14154942

PATIENT
  Sex: Female

DRUGS (1)
  1. ORENCIA [Suspect]

REACTIONS (1)
  - PANNICULITIS [None]
